FAERS Safety Report 9913071 (Version 3)
Quarter: 2014Q2

REPORT INFORMATION
  Report Type: Spontaneous
  Country: IT (occurrence: None)
  Receive Date: 20140214
  Receipt Date: 20140414
  Transmission Date: 20141212
  Serious: Yes (Hospitalization)
  Sender: FDA-Public Use
  Company Number: AUR-APL-2014-01481

PATIENT
  Age: 90 Year
  Sex: Male

DRUGS (13)
  1. LEVOFLOXACIN [Suspect]
     Indication: BRONCHITIS
     Dosage: 1 D
     Route: 048
     Dates: start: 20131007, end: 20131013
  2. COUMADIN [Suspect]
     Indication: ATRIAL FIBRILLATION
     Dosage: AS REQUIRED
     Route: 048
     Dates: start: 20081014, end: 20131014
  3. SOLOSA (GLIMEPIRIDE) [Concomitant]
  4. ZYLORIC (ALLOPURINOL) [Concomitant]
  5. LYRICA (PREGABALIN) [Concomitant]
  6. TORVAST (ATORVASTATIN CALCIUM) [Concomitant]
  7. STILNOX (ZOLPIDEM TARTRATE) [Concomitant]
  8. LASIX (FUROSEMIDE) [Concomitant]
  9. METFORMIN [Concomitant]
  10. ESOMEPRAZOLE MAGNESIUM [Concomitant]
  11. LEVODOPA [Concomitant]
  12. FINASTERIDE [Concomitant]
  13. BISOPROLOL FUMARATE [Concomitant]

REACTIONS (2)
  - Drug interaction [None]
  - Hypocoagulable state [None]
